FAERS Safety Report 18423524 (Version 1)
Quarter: 2020Q4

REPORT INFORMATION
  Report Type: Spontaneous
  Country: US (occurrence: US)
  Receive Date: 20201023
  Receipt Date: 20201023
  Transmission Date: 20210114
  Serious: Yes (Other)
  Sender: FDA-Public Use
  Company Number: US-ASTRAZENECA-2020SF38391

PATIENT
  Age: 80 Year
  Sex: Female

DRUGS (11)
  1. IBRANCE [Suspect]
     Active Substance: PALBOCICLIB
     Indication: BREAST CANCER FEMALE
     Dosage: SHE HAS BEEN TAKING IT FOR 4-5 MONTHS 75.0MG UNKNOWN
     Route: 048
  2. IBRANCE [Suspect]
     Active Substance: PALBOCICLIB
     Indication: LUNG NEOPLASM MALIGNANT
     Dosage: 100 MG ONE TABLET DAILY FOR 3 WEEKS AND OFF FOR ONE WEEK. IT WAS JUST 3 WEEKS AGO UNKNOWN
     Route: 048
  3. LISINOPRIL. [Suspect]
     Active Substance: LISINOPRIL
     Route: 048
     Dates: start: 2003, end: 2012
  4. ARIMIDEX [Suspect]
     Active Substance: ANASTROZOLE
     Route: 048
     Dates: start: 2003
  5. TAMOXIFEN [Suspect]
     Active Substance: TAMOXIFEN
     Dosage: EITHER 2011 OR 2010
     Route: 048
  6. METFORMIN [Concomitant]
     Active Substance: METFORMIN HYDROCHLORIDE
     Indication: DIABETES MELLITUS
     Route: 065
  7. METFORMIN [Concomitant]
     Active Substance: METFORMIN HYDROCHLORIDE
     Indication: DIABETES MELLITUS
     Route: 065
     Dates: start: 2012
  8. SYNTHROID [Concomitant]
     Active Substance: LEVOTHYROXINE SODIUM
     Indication: HYPOTHYROIDISM
     Route: 048
  9. IBRANCE [Suspect]
     Active Substance: PALBOCICLIB
     Indication: LUNG NEOPLASM MALIGNANT
     Dosage: SHE HAS BEEN TAKING IT FOR 4-5 MONTHS 75.0MG UNKNOWN
     Route: 048
  10. FASLODEX [Suspect]
     Active Substance: FULVESTRANT
     Route: 030
     Dates: start: 2011
  11. IBRANCE [Suspect]
     Active Substance: PALBOCICLIB
     Indication: BREAST CANCER FEMALE
     Dosage: 100 MG ONE TABLET DAILY FOR 3 WEEKS AND OFF FOR ONE WEEK. IT WAS JUST 3 WEEKS AGO UNKNOWN
     Route: 048

REACTIONS (9)
  - Hypertension [Unknown]
  - Cough [Not Recovered/Not Resolved]
  - Blood cholesterol increased [Unknown]
  - Malignant neoplasm progression [Not Recovered/Not Resolved]
  - Salivary hypersecretion [Not Recovered/Not Resolved]
  - Diabetes mellitus [Unknown]
  - Body height decreased [Unknown]
  - Breast cancer metastatic [Unknown]
  - Hypothyroidism [Unknown]

NARRATIVE: CASE EVENT DATE: 2003
